FAERS Safety Report 5728810-9 (Version None)
Quarter: 2008Q2

REPORT INFORMATION
  Report Type: 
  Country: None (occurrence: None)
  Receive Date: 20080430
  Receipt Date: 20080416
  Transmission Date: 20081010
  Serious: Yes (Hospitalization)
  Sender: FDA-Public Use
  Company Number: 028-21880-08040719

PATIENT
  Age: 87 Year
  Sex: Male
  Weight: 78 kg

DRUGS (2)
  1. REVLIMID [Suspect]
     Indication: MYELODYSPLASTIC SYNDROME
     Dosage: 10 MG, DAILY X 21 DAYS, Q 28 DAYS,  ORAL
     Route: 048
     Dates: start: 20080221, end: 20080309
  2. MELPHALAN (MELPHALAN) (UNKNOWN) [Suspect]
     Indication: MYELODYSPLASTIC SYNDROME
     Dosage: 2 MG, X 21 DAYS , Q 28 DAYS
     Dates: start: 20080221, end: 20080309

REACTIONS (6)
  - ATRIAL FIBRILLATION [None]
  - ATRIAL FLUTTER [None]
  - HYPERTHYROIDISM [None]
  - MYALGIA [None]
  - PLEURAL EFFUSION [None]
  - POLYARTHRITIS [None]
